FAERS Safety Report 4488967-7 (Version None)
Quarter: 2004Q4

REPORT INFORMATION
  Report Type: 
  Country: None (occurrence: None)
  Receive Date: 20041029
  Receipt Date: 20041022
  Transmission Date: 20050328
  Serious: Yes (Other)
  Sender: FDA-Public Use
  Company Number: 200420691GDDC

PATIENT
  Age: 41 Year
  Sex: Female

DRUGS (4)
  1. METRONIDAZOLE [Suspect]
     Indication: VAGINITIS BACTERIAL
     Route: 048
  2. NICORETTE [Suspect]
     Route: 048
  3. LEVOTHYROXINE SODIUM [Concomitant]
  4. POTASSIUM IODIDE [Concomitant]

REACTIONS (11)
  - ERYTHEMA [None]
  - EXANTHEM [None]
  - LABORATORY TEST ABNORMAL [None]
  - LICHEN PLANUS [None]
  - PIGMENTATION DISORDER [None]
  - PRURITUS [None]
  - RASH PAPULAR [None]
  - RASH SCALY [None]
  - RASH VESICULAR [None]
  - SKIN LESION [None]
  - SKIN OEDEMA [None]
